FAERS Safety Report 8887739 (Version 1)
Quarter: 2012Q4

REPORT INFORMATION
  Report Type: 
  Country: US (occurrence: US)
  Receive Date: 20121106
  Receipt Date: 20121106
  Transmission Date: 20130627
  Serious: No
  Sender: FDA-Public Use
  Company Number: US-ASTRAZENECA-2012SE21180

PATIENT
  Age: 65 Year
  Sex: Female

DRUGS (2)
  1. TENORMIN [Suspect]
     Route: 048
  2. TOPROL XL [Suspect]
     Route: 048

REACTIONS (5)
  - Drug hypersensitivity [Unknown]
  - Essential tremor [Unknown]
  - Nervousness [Unknown]
  - Feeling abnormal [Unknown]
  - Fatigue [Unknown]
